FAERS Safety Report 8427783-8 (Version None)
Quarter: 2012Q2

REPORT INFORMATION
  Report Type: 
  Country: None (occurrence: None)
  Receive Date: 20120611
  Receipt Date: 20120601
  Transmission Date: 20120825
  Serious: Yes (Other)
  Sender: FDA-Public Use
  Company Number: US-BAXTER-2012BAX007163

PATIENT
  Sex: Female
  Weight: 61.4 kg

DRUGS (8)
  1. GAMMAGARD LIQUID [Suspect]
     Route: 058
     Dates: start: 20120517, end: 20120517
  2. DULERA [Concomitant]
     Indication: ASTHMA
     Dosage: 1 PUFF
  3. GAMMAGARD LIQUID [Suspect]
     Route: 058
     Dates: start: 20110101
  4. ALBUTEROL [Concomitant]
     Indication: ASTHMA
     Dosage: 1 PUFF AS NEEDED
  5. GAMMAGARD LIQUID [Suspect]
     Route: 058
     Dates: start: 20120524, end: 20120524
  6. QVAR 40 [Concomitant]
     Indication: ASTHMA
     Dosage: 1 PUFF 2X A DAY
  7. ZYFLO [Concomitant]
     Indication: ASTHMA
     Route: 048
  8. PREVACID [Concomitant]
     Route: 048

REACTIONS (3)
  - RENAL PAIN [None]
  - URINE OUTPUT DECREASED [None]
  - URINE COLOUR ABNORMAL [None]
